FAERS Safety Report 5434284-8 (Version None)
Quarter: 2007Q3

REPORT INFORMATION
  Report Type: 
  Country: None (occurrence: None)
  Receive Date: 20070828
  Receipt Date: 20070828
  Transmission Date: 20080115
  Serious: No
  Sender: FDA-Public Use
  Company Number: None

PATIENT
  Sex: Female

DRUGS (2)
  1. ZOLPIDEM [Suspect]
     Indication: INSOMNIA
     Dosage: 10MG TWICE HS PO APPROX 10 MG FROM JUNE 2007
     Route: 048
     Dates: start: 20070601
  2. ZOLPIDEM [Suspect]
     Indication: MAJOR DEPRESSION
     Dosage: 10MG TWICE HS PO APPROX 10 MG FROM JUNE 2007
     Route: 048
     Dates: start: 20070601

REACTIONS (2)
  - DRUG INEFFECTIVE [None]
  - THERAPEUTIC RESPONSE UNEXPECTED WITH DRUG SUBSTITUTION [None]
